FAERS Safety Report 7341781-7 (Version None)
Quarter: 2011Q1

REPORT INFORMATION
  Report Type: 
  Country: None (occurrence: None)
  Receive Date: 20110309
  Receipt Date: 20110301
  Transmission Date: 20110831
  Serious: Yes (Hospitalization)
  Sender: FDA-Public Use
  Company Number: US-PFIZER INC-2011005020

PATIENT
  Sex: Female
  Weight: 10.4 kg

DRUGS (4)
  1. PREVACID [Concomitant]
     Dosage: 1 ML, 2X/DAY
  2. SODIUM CHLORIDE [Concomitant]
     Indication: BLOOD POTASSIUM DECREASED
     Dosage: UNK
  3. SILDENAFIL CITRATE [Suspect]
     Indication: FALLOT'S TETRALOGY
     Dosage: UNK
     Dates: start: 20100101, end: 20100101
  4. SILDENAFIL CITRATE [Suspect]
     Indication: PULMONARY OEDEMA
     Dosage: 4.8 ML, 4X/DAY
     Dates: start: 20101001

REACTIONS (2)
  - CARDIAC FAILURE [None]
  - RESPIRATORY FAILURE [None]
